FAERS Safety Report 22044867 (Version 1)
Quarter: 2023Q1

REPORT INFORMATION
  Report Type: Report from Study
  Country: ZA (occurrence: ZA)
  Receive Date: 20230228
  Receipt Date: 20230228
  Transmission Date: 20230418
  Serious: Yes (Other)
  Sender: FDA-Public Use
  Company Number: ZA-002147023-NVSC2022ZA013726

PATIENT
  Age: 66 Year
  Sex: Female

DRUGS (2)
  1. RIBOCICLIB [Suspect]
     Active Substance: RIBOCICLIB
     Indication: Breast cancer metastatic
     Dosage: 400 MG, QD
     Route: 048
     Dates: start: 20210526
  2. RIBOCICLIB [Suspect]
     Active Substance: RIBOCICLIB
     Dosage: 400 MG, QD
     Route: 048
     Dates: start: 20210526

REACTIONS (16)
  - Pulmonary fibrosis [Unknown]
  - Abdominal discomfort [Unknown]
  - Skin burning sensation [Unknown]
  - Chest discomfort [Unknown]
  - Sensitive skin [Unknown]
  - Urticaria [Unknown]
  - Skin discolouration [Unknown]
  - Hernia [Unknown]
  - Gout [Unknown]
  - Influenza [Unknown]
  - Dry skin [Unknown]
  - Diarrhoea [Unknown]
  - Dyspnoea [Unknown]
  - Productive cough [Unknown]
  - Nausea [Unknown]
  - Cough [Unknown]

NARRATIVE: CASE EVENT DATE: 20230201
